FAERS Safety Report 9358034 (Version 1)
Quarter: 2013Q2

REPORT INFORMATION
  Report Type: Spontaneous
  Country: JP (occurrence: JP)
  Receive Date: 20130620
  Receipt Date: 20130620
  Transmission Date: 20140414
  Serious: Yes (Death, Hospitalization, Other)
  Sender: FDA-Public Use
  Company Number: JP-ASTELLAS-2013US006364

PATIENT
  Age: 77 Year
  Sex: Male

DRUGS (9)
  1. TARCEVA [Suspect]
     Indication: LUNG ADENOCARCINOMA
     Dosage: 150 MG, UID/QD
     Route: 048
     Dates: start: 20130305, end: 20130329
  2. ALOSITOL [Concomitant]
     Indication: LUNG ADENOCARCINOMA
     Dosage: 100 MG, TID
     Route: 048
     Dates: start: 20100621, end: 20130402
  3. PERSANTIN [Concomitant]
     Indication: LUNG ADENOCARCINOMA
     Dosage: 25 MG, TID
     Route: 048
     Dates: start: 20100621, end: 20130402
  4. DIOVAN [Concomitant]
     Indication: LUNG ADENOCARCINOMA
     Dosage: 80 G, UID/QD
     Route: 048
     Dates: start: 20100621, end: 20130402
  5. ATELEC [Concomitant]
     Indication: LUNG ADENOCARCINOMA
     Dosage: 10 MG, UID/QD
     Route: 048
     Dates: start: 20100621, end: 20130402
  6. ALESION [Concomitant]
     Indication: LUNG ADENOCARCINOMA
     Dosage: 20 MG, UID/QD
     Route: 048
     Dates: start: 20100621, end: 20130402
  7. OMEPRAL                            /00661201/ [Concomitant]
     Indication: LUNG ADENOCARCINOMA
     Dosage: 20 MG, UID/QD
     Route: 048
     Dates: start: 20111209, end: 20130402
  8. LYRICA [Concomitant]
     Indication: LUNG ADENOCARCINOMA
     Dosage: 150 MG, BID
     Route: 048
     Dates: start: 20120423, end: 20130402
  9. ARGAMATE [Concomitant]
     Indication: LUNG ADENOCARCINOMA
     Dosage: 25 G, TID
     Route: 048
     Dates: start: 20120528, end: 20130402

REACTIONS (5)
  - Supraventricular extrasystoles [Unknown]
  - Pneumonia [Fatal]
  - Interstitial lung disease [Fatal]
  - Metastases to lung [Unknown]
  - Lymphangiosis carcinomatosa [Fatal]
